FAERS Safety Report 16675688 (Version 3)
Quarter: 2019Q3

REPORT INFORMATION
  Report Type: Report from Study
  Country: PA (occurrence: PA)
  Receive Date: 20190806
  Receipt Date: 20190821
  Transmission Date: 20191004
  Serious: Yes (Other)
  Sender: FDA-Public Use
  Company Number: PHHY2019PA150370

PATIENT
  Age: 30 Year
  Sex: Female

DRUGS (6)
  1. GILENYA [Suspect]
     Active Substance: FINGOLIMOD HYDROCHLORIDE
     Indication: MULTIPLE SCLEROSIS
     Dosage: 0.5 MG, UNK
     Route: 065
  2. VITAMIN D [Suspect]
     Active Substance: VITAMIN D NOS
     Indication: PRODUCT USED FOR UNKNOWN INDICATION
     Dosage: 1 DF, QD
     Route: 065
  3. VITAMIN E [Suspect]
     Active Substance: .ALPHA.-TOCOPHEROL
     Indication: PRODUCT USED FOR UNKNOWN INDICATION
     Route: 065
  4. VITAMIIN C [Concomitant]
     Active Substance: ASCORBIC ACID
     Indication: PRODUCT USED FOR UNKNOWN INDICATION
     Dosage: 1 DF, QD
     Route: 065
  5. YASMIN [Concomitant]
     Active Substance: DROSPIRENONE\ETHINYL ESTRADIOL
     Indication: CONTRACEPTION
     Dosage: 1 DF, QD
     Route: 065
  6. VITAMIN B [Concomitant]
     Active Substance: VITAMIN B
     Indication: PRODUCT USED FOR UNKNOWN INDICATION
     Route: 065

REACTIONS (31)
  - Influenza [Recovering/Resolving]
  - Myalgia [Unknown]
  - Nausea [Unknown]
  - Fatigue [Recovering/Resolving]
  - Blindness [Unknown]
  - Hypoaesthesia [Unknown]
  - Paraesthesia [Unknown]
  - Pain in extremity [Unknown]
  - White blood cell disorder [Unknown]
  - Dyspnoea [Unknown]
  - Back pain [Unknown]
  - Abdominal pain [Unknown]
  - Muscle spasms [Unknown]
  - Vomiting [Unknown]
  - Insomnia [Unknown]
  - Visual impairment [Unknown]
  - Confusional state [Unknown]
  - Depressed mood [Recovering/Resolving]
  - Hyperhidrosis [Unknown]
  - Abdominal pain lower [Unknown]
  - Mobility decreased [Not Recovered/Not Resolved]
  - Headache [Unknown]
  - Vision blurred [Recovered/Resolved]
  - Somnolence [Unknown]
  - Malaise [Unknown]
  - Asthenia [Unknown]
  - Muscular weakness [Recovering/Resolving]
  - Neutrophil count abnormal [Unknown]
  - Pain [Unknown]
  - Ill-defined disorder [Unknown]
  - Dizziness [Unknown]
